FAERS Safety Report 5234051-4 (Version None)
Quarter: 2007Q1

REPORT INFORMATION
  Report Type: 
  Country: None (occurrence: None)
  Receive Date: 20070208
  Receipt Date: 20070129
  Transmission Date: 20070707
  Serious: Yes (Other)
  Sender: FDA-Public Use
  Company Number: US-PFIZER INC-2006154323

PATIENT
  Sex: Female
  Weight: 79.4 kg

DRUGS (9)
  1. CHANTIX [Suspect]
     Indication: SMOKING CESSATION THERAPY
     Route: 048
  2. NEXIUM [Concomitant]
  3. VITAMIN CAP [Concomitant]
  4. AMOXICILLIN [Concomitant]
  5. ALEVE [Concomitant]
  6. CHLORPHENIRAMINE MALEATE AND PSEUDOEPHEDRINE HCL [Concomitant]
  7. ZITHROMAX [Concomitant]
  8. PRILOSEC [Concomitant]
  9. VITAMIN E [Concomitant]

REACTIONS (2)
  - INSOMNIA [None]
  - NECK MASS [None]
